FAERS Safety Report 18535495 (Version 2)
Quarter: 2021Q1

REPORT INFORMATION
  Report Type: Spontaneous
  Country: US (occurrence: US)
  Receive Date: 20201123
  Receipt Date: 20210322
  Transmission Date: 20210419
  Serious: Yes (Hospitalization, Other)
  Sender: FDA-Public Use
  Company Number: US-TEVA-2020-US-1851585

PATIENT
  Sex: Male
  Weight: 96.16 kg

DRUGS (15)
  1. VALSARTAN /HYDROCHLOROTHIAZIDE?TEVA [Suspect]
     Active Substance: HYDROCHLOROTHIAZIDE\VALSARTAN
     Indication: HYPERTENSION
     Dosage: 160/12.5 MG
     Route: 065
     Dates: start: 20151029, end: 20160426
  2. ULORIC [Concomitant]
     Active Substance: FEBUXOSTAT
     Indication: URINARY TRACT DISORDER
     Dosage: 40 MILLIGRAM DAILY;
     Route: 048
     Dates: start: 2014
  3. VALSARTAN/HYDROCHLOROTHIAZIDE? SOLCO [Suspect]
     Active Substance: HYDROCHLOROTHIAZIDE\VALSARTAN
     Indication: HYPERTENSION
     Dosage: 160/12.5 MG
     Route: 065
     Dates: start: 20170313, end: 20181003
  4. CELECOXIB. [Concomitant]
     Active Substance: CELECOXIB
     Indication: PAIN
     Dosage: 50 MILLIGRAM DAILY; 1 CAPSULE ORALLY ONCE A DAY X 30 DAYS AS NEEDED FOR PAIN
     Route: 048
  5. NYSTATIN. [Concomitant]
     Active Substance: NYSTATIN
     Dosage: 100000 UNITS/G TOPICAL POWDER: APPLY TOPICALLY TO AFFECTED AREA 3 TIMES A DAY
     Route: 061
  6. TAMSULOSIN [Concomitant]
     Active Substance: TAMSULOSIN
     Indication: URINARY TRACT DISORDER
     Dosage: .4 MILLIGRAM DAILY; 0.4 MG ONCE A DAY
     Route: 065
  7. ASPIRIN. [Concomitant]
     Active Substance: ASPIRIN
     Indication: HEADACHE
     Dosage: 200 MG AS NEEDED, FROM AN UNKNOWN DATE TO PRESENT.
     Route: 065
  8. CAPECITABINE. [Concomitant]
     Active Substance: CAPECITABINE
     Dosage: 3 TABLETS ORALLY EVERY 12 HOURS X 14 DAYS FOLLOWED BY 7 DAYS OF REST.
     Route: 048
  9. IRBESARTAN. [Concomitant]
     Active Substance: IRBESARTAN
     Indication: HYPERTENSION
     Dosage: 150 MILLIGRAM DAILY; 1 TABLETS ORALLY ONCE A DAY
     Route: 048
  10. BENICAR HCT [Concomitant]
     Active Substance: HYDROCHLOROTHIAZIDE\OLMESARTAN MEDOXOMIL
     Indication: HYPERTENSION
     Dosage: 40?25 MG ONCE A DAY
     Route: 065
     Dates: start: 2014
  11. DOXYCYCLINE. [Concomitant]
     Active Substance: DOXYCYCLINE
     Indication: INFECTION
     Dosage: 100 MILLIGRAM DAILY; TOOK ON AND OFF
     Route: 065
     Dates: end: 2017
  12. CLOBETASOL [Concomitant]
     Active Substance: CLOBETASOL
     Dosage: APPLY TOPICALLY TO HANDS AND FEET 2 TIMES A DAY
     Route: 061
  13. PROCHLORPERAZINE. [Concomitant]
     Active Substance: PROCHLORPERAZINE
     Indication: NAUSEA
     Dosage: 1 TABLET ORALLY EVERY 6 HOURS, AS NEEDED
     Route: 048
  14. LAC?HYDRIN [Concomitant]
     Active Substance: AMMONIUM LACTATE
     Dosage: APPLY TOPICALLY TO HANDS AND FEET 2 TIMES A DAY X 30 DAYS
     Route: 061
  15. SILVER SULFADIAZINE. [Concomitant]
     Active Substance: SILVER SULFADIAZINE
     Dosage: APPLY TOPICALLY GENITAL AREA 3 TIMES A DAY
     Route: 061

REACTIONS (1)
  - Colon cancer [Recovered/Resolved]
